FAERS Safety Report 9283571 (Version 3)
Quarter: 2014Q1

REPORT INFORMATION
  Report Type: Report from Study
  Country: US (occurrence: US)
  Receive Date: 20130510
  Receipt Date: 20140130
  Transmission Date: 20141002
  Serious: Yes (Hospitalization)
  Sender: FDA-Public Use
  Company Number: US-SANOFI-AVENTIS-2013SA047044

PATIENT
  Age: 43 Year
  Sex: Female

DRUGS (2)
  1. AUBAGIO [Suspect]
     Indication: MULTIPLE SCLEROSIS
     Route: 048
     Dates: start: 20130422
  2. AUBAGIO [Suspect]
     Indication: MULTIPLE SCLEROSIS
     Route: 048

REACTIONS (2)
  - Multiple sclerosis relapse [Recovering/Resolving]
  - Multiple sclerosis relapse [Unknown]
